FAERS Safety Report 17203286 (Version 1)
Quarter: 2019Q4

REPORT INFORMATION
  Report Type: Spontaneous
  Country: US (occurrence: US)
  Receive Date: 20191226
  Receipt Date: 20191226
  Transmission Date: 20200122
  Serious: No
  Sender: FDA-Public Use
  Company Number: US-UPSHER-SMITH LABORATORIES, LLC-2018USL00608

PATIENT
  Sex: Female
  Weight: 65.76 kg

DRUGS (19)
  1. KLOR-CON M [Suspect]
     Active Substance: POTASSIUM CHLORIDE
     Indication: UNEVALUABLE EVENT
     Dosage: 10 MEQ, 1X/DAY (WHEN SHE REMEMBERS TO TAKE IT)
     Route: 048
  2. OCUGUARD PLUS [Concomitant]
  3. UNSPECIFIED OTHER PRODUCTS [Concomitant]
     Dosage: OCCASIONALLY
  4. CALCIUM [Concomitant]
     Active Substance: CALCIUM
  5. VITAMIN C [Concomitant]
     Active Substance: ASCORBIC ACID
  6. TURMERIC [Concomitant]
     Active Substance: HERBALS\TURMERIC
  7. MAGNESIUM GLYSONATE [Concomitant]
  8. SUNFLOWER LECITHIN [Concomitant]
  9. GINKGO BILOBA [Concomitant]
     Active Substance: GINKGO
     Dosage: NOT EVERY DAY
  10. VITAMIN D [Concomitant]
     Active Substance: VITAMIN D NOS
  11. L-TYROSINE [Concomitant]
     Active Substance: TYROSINE
  12. OMEGA 3 [Concomitant]
     Active Substance: OMEGA-3 FATTY ACIDS
  13. ARMOUR THYROID [Concomitant]
     Active Substance: THYROID, PORCINE
     Dosage: UNK, 1X/DAY IN THE MIDDLE OF THE NIGHT
  14. ALBUTEROL. [Concomitant]
     Active Substance: ALBUTEROL
  15. IPRATROPIUM BROMIDE. [Concomitant]
     Active Substance: IPRATROPIUM BROMIDE
  16. MSM AND GLUCOSAMINE [Concomitant]
  17. GINGER. [Concomitant]
     Active Substance: GINGER
  18. MEGA MULTI MINERAL [Concomitant]
  19. L-CARNITINE [Concomitant]
     Active Substance: LEVOCARNITINE

REACTIONS (2)
  - Gastrooesophageal reflux disease [Recovered/Resolved]
  - Nausea [Recovered/Resolved]
